FAERS Safety Report 25281909 (Version 1)
Quarter: 2025Q2

REPORT INFORMATION
  Report Type: Spontaneous
  Country: US (occurrence: US)
  Receive Date: 20250508
  Receipt Date: 20250508
  Transmission Date: 20250717
  Serious: Yes (Death)
  Sender: KARYOPHARM THERAPEUTICS
  Company Number: US-KARYOPHARM-2025KPT100243

PATIENT

DRUGS (20)
  1. SELINEXOR [Suspect]
     Active Substance: SELINEXOR
     Indication: Plasma cell myeloma
     Route: 048
     Dates: start: 20250403, end: 202505
  2. ACYCLOVIR [Concomitant]
     Active Substance: ACYCLOVIR
  3. ARANESP [Concomitant]
     Active Substance: DARBEPOETIN ALFA
  4. BACTRIM DS [Concomitant]
     Active Substance: SULFAMETHOXAZOLE\TRIMETHOPRIM
  5. DESMOPRESSIN [Concomitant]
     Active Substance: DESMOPRESSIN
  6. DEXAMETHASONE [Concomitant]
     Active Substance: DEXAMETHASONE
  7. DIPHENHYDRAMINE [Concomitant]
     Active Substance: DIPHENHYDRAMINE
  8. LEVOFLOXACIN [Concomitant]
     Active Substance: LEVOFLOXACIN
  9. LOPERAMIDE HYDROCHLORIDE [Concomitant]
     Active Substance: LOPERAMIDE HYDROCHLORIDE
  10. METOCLOPRAMIDE [Concomitant]
     Active Substance: METOCLOPRAMIDE
  11. NEULASTA [Concomitant]
     Active Substance: PEGFILGRASTIM
  12. OLANZAPINE [Concomitant]
     Active Substance: OLANZAPINE
  13. PROAIR HFA [Concomitant]
     Active Substance: ALBUTEROL SULFATE
  14. PROCHLORPERAZINE [Concomitant]
     Active Substance: PROCHLORPERAZINE
  15. PROMACTA [Concomitant]
     Active Substance: ELTROMBOPAG OLAMINE
  16. SANCUSO [Concomitant]
     Active Substance: GRANISETRON
  17. VANCOMYCIN [Concomitant]
     Active Substance: VANCOMYCIN
  18. VELCADE [Concomitant]
     Active Substance: BORTEZOMIB
  19. XGEVA [Concomitant]
     Active Substance: DENOSUMAB
  20. ZOFRAN [Concomitant]
     Active Substance: ONDANSETRON HYDROCHLORIDE

REACTIONS (1)
  - Death [Fatal]

NARRATIVE: CASE EVENT DATE: 20250101
